FAERS Safety Report 21812757 (Version 1)
Quarter: 2022Q4

REPORT INFORMATION
  Report Type: Spontaneous
  Country: US (occurrence: None)
  Receive Date: 20221231
  Receipt Date: 20221231
  Transmission Date: 20230112
  Serious: Yes (Death, Other)
  Sender: FDA-Public Use
  Company Number: None

PATIENT
  Age: 45 Year
  Sex: Male
  Weight: 64.6 kg

DRUGS (1)
  1. AMIVANTAMAB [Suspect]
     Active Substance: AMIVANTAMAB
     Indication: Non-small cell lung cancer
     Dosage: OTHER FREQUENCY : ONCE;?
     Route: 042
     Dates: start: 20220801, end: 20220801

REACTIONS (14)
  - Pneumonitis [None]
  - Acute respiratory failure [None]
  - Infusion related reaction [None]
  - Dyspnoea [None]
  - Throat irritation [None]
  - Dyspnoea [None]
  - Pneumothorax [None]
  - Pleural effusion [None]
  - Lung infiltration [None]
  - Pneumonia [None]
  - Non-small cell lung cancer [None]
  - Lung opacity [None]
  - Infection [None]
  - Inflammation [None]

NARRATIVE: CASE EVENT DATE: 20220809
